FAERS Safety Report 9883561 (Version 1)
Quarter: 2014Q1

REPORT INFORMATION
  Report Type: Spontaneous
  Country: JP (occurrence: JP)
  Receive Date: 20140210
  Receipt Date: 20140210
  Transmission Date: 20141002
  Serious: Yes (Death, Other)
  Sender: FDA-Public Use
  Company Number: JP-ROCHE-1342574

PATIENT
  Age: 77 Year
  Sex: Male

DRUGS (5)
  1. RITUXIMAB [Suspect]
     Indication: ACQUIRED HAEMOPHILIA
     Route: 065
  2. LEVOFLOXACIN [Concomitant]
     Indication: NEUTROPENIA
  3. CYCLOPHOSPHAMIDE [Concomitant]
     Indication: ACQUIRED HAEMOPHILIA
     Route: 048
  4. PREDNISOLONE [Concomitant]
     Indication: ACQUIRED HAEMOPHILIA
     Route: 048
  5. ITRACONAZOLE [Concomitant]
     Indication: NEUTROPENIA

REACTIONS (2)
  - Pneumocystis jirovecii pneumonia [Fatal]
  - Acute myeloid leukaemia [Unknown]
